FAERS Safety Report 19841589 (Version 3)
Quarter: 2021Q4

REPORT INFORMATION
  Report Type: Spontaneous
  Country: US (occurrence: US)
  Receive Date: 20210916
  Receipt Date: 20211202
  Transmission Date: 20220303
  Serious: Yes (Other)
  Sender: FDA-Public Use
  Company Number: US-PFIZER INC-202101162045

PATIENT
  Age: 63 Year
  Sex: Female
  Weight: 81.633 kg

DRUGS (11)
  1. IBRANCE [Suspect]
     Active Substance: PALBOCICLIB
     Indication: Breast cancer female
     Dosage: 125 MG, (DAILY X 21 DAYS THEN 7 DAYS OFF)
     Route: 048
     Dates: start: 20210813
  2. FEMARA [Suspect]
     Active Substance: LETROZOLE
  3. ASPERCREME PAIN RELIEVING [Concomitant]
     Active Substance: TROLAMINE SALICYLATE
     Dosage: UNK
  4. ACETAMINOPHEN\ASCORBIC ACID [Concomitant]
     Active Substance: ACETAMINOPHEN\ASCORBIC ACID
     Dosage: UNK
  5. METOPROLOL TARTRATE [Concomitant]
     Active Substance: METOPROLOL TARTRATE
     Dosage: UNK
  6. PRAMIPEXOLE [Concomitant]
     Active Substance: PRAMIPEXOLE
     Dosage: UNK
  7. PROCHLORPERAZINE MALEATE [Concomitant]
     Active Substance: PROCHLORPERAZINE MALEATE
     Dosage: UNK
  8. ANTI-DIARRHEAL [Concomitant]
     Active Substance: LOPERAMIDE HYDROCHLORIDE
  9. GAS-X [Concomitant]
     Active Substance: DIMETHICONE
  10. NASAL SPRAY II [Concomitant]
  11. TYLENOL [Concomitant]
     Active Substance: ACETAMINOPHEN

REACTIONS (13)
  - Neuropathy peripheral [Unknown]
  - Diarrhoea [Not Recovered/Not Resolved]
  - Abdominal discomfort [Unknown]
  - Fatigue [Unknown]
  - Hot flush [Unknown]
  - Headache [Not Recovered/Not Resolved]
  - Back pain [Unknown]
  - Intervertebral disc displacement [Unknown]
  - Sinus pain [Unknown]
  - Nausea [Unknown]
  - COVID-19 [Unknown]
  - Flatulence [Unknown]
  - Cough [Unknown]
